FAERS Safety Report 24551353 (Version 1)
Quarter: 2024Q4

REPORT INFORMATION
  Report Type: Spontaneous
  Country: US (occurrence: US)
  Receive Date: 20241026
  Receipt Date: 20241026
  Transmission Date: 20250114
  Serious: No
  Sender: NOVITIUM PHARMA
  Company Number: US-NOVITIUMPHARMA-2024USNVP02352

PATIENT
  Age: 55 Year
  Sex: Female
  Weight: 90.7 kg

DRUGS (2)
  1. THIOTHIXENE [Suspect]
     Active Substance: THIOTHIXENE
     Indication: Product used for unknown indication
     Dosage: 1 CAPSULE IN THE EVENING
     Route: 048
     Dates: start: 202405
  2. Olanvapine [Concomitant]
     Indication: Product used for unknown indication

REACTIONS (2)
  - Fall [Unknown]
  - Contusion [Not Recovered/Not Resolved]

NARRATIVE: CASE EVENT DATE: 20240826
